FAERS Safety Report 5207111-1 (Version None)
Quarter: 2007Q1

REPORT INFORMATION
  Report Type: 
  Country: None (occurrence: None)
  Receive Date: 20070112
  Receipt Date: 20070104
  Transmission Date: 20070707
  Serious: Yes (Death, Hospitalization)
  Sender: FDA-Public Use
  Company Number: AR-ROCHE-428642

PATIENT
  Age: 57 Year
  Sex: Female

DRUGS (4)
  1. CAPECITABINE [Suspect]
     Indication: BREAST CANCER
     Dosage: DOSE REPORTED AS 4000 (NO UNITS PROVIDED).
     Route: 048
     Dates: start: 20051123, end: 20051201
  2. ALPRAZOLAM [Concomitant]
     Dates: start: 20050515, end: 20051209
  3. DEXAMETHASONE [Concomitant]
     Dates: start: 20050515, end: 20050615
  4. TELMISARTAN [Concomitant]
     Dates: start: 20030615, end: 20051209

REACTIONS (2)
  - MUCOSAL INFLAMMATION [None]
  - PULMONARY OEDEMA [None]
